FAERS Safety Report 17698623 (Version 1)
Quarter: 2020Q2

REPORT INFORMATION
  Report Type: Spontaneous
  Country: FR (occurrence: FR)
  Receive Date: 20200423
  Receipt Date: 20200423
  Transmission Date: 20200714
  Serious: Yes (Hospitalization, Other)
  Sender: FDA-Public Use
  Company Number: FR-SUN PHARMACEUTICAL INDUSTRIES LTD-2019RR-213742

PATIENT
  Age: 71 Year
  Sex: Female
  Weight: 76 kg

DRUGS (3)
  1. LETROZOLE. [Suspect]
     Active Substance: LETROZOLE
     Indication: BREAST CANCER METASTATIC
     Dosage: 1 DOSAGE FORM, QD
     Route: 048
  2. XGEVA [Concomitant]
     Active Substance: DENOSUMAB
     Indication: PRODUCT USED FOR UNKNOWN INDICATION
     Dosage: UNK
     Route: 065
  3. PALBOCICLIB [Suspect]
     Active Substance: PALBOCICLIB
     Indication: BREAST CANCER METASTATIC
     Dosage: 125 MILLIGRAM, QD (3 WEEKS OUT OF 4 WEEKS)
     Route: 065
     Dates: start: 20180526

REACTIONS (7)
  - White blood cell count decreased [Unknown]
  - Deep vein thrombosis [Unknown]
  - Haemoglobin decreased [Unknown]
  - Neutrophil count decreased [Unknown]
  - Blood pressure increased [Unknown]
  - Heart rate increased [Unknown]
  - Pulmonary embolism [Recovered/Resolved]

NARRATIVE: CASE EVENT DATE: 20181205
